FAERS Safety Report 24973765 (Version 1)
Quarter: 2025Q1

REPORT INFORMATION
  Report Type: Spontaneous
  Country: ZA (occurrence: ZA)
  Receive Date: 20250217
  Receipt Date: 20250217
  Transmission Date: 20250409
  Serious: Yes (Hospitalization)
  Sender: AMGEN
  Company Number: ZA-SERVIER-S24018683

PATIENT
  Age: 75 Year
  Sex: Female

DRUGS (15)
  1. IVABRADINE HYDROCHLORIDE [Suspect]
     Active Substance: IVABRADINE HYDROCHLORIDE
     Indication: Angina pectoris
     Dosage: 5 MG TAKE ONE TABLET TWICE A DAY
     Route: 048
  2. ACETYLCYSTEINE [Concomitant]
     Active Substance: ACETYLCYSTEINE
     Indication: Product used for unknown indication
     Dosage: 600 MG TAKE ONE DISSOLVED IN WATER DAILY
     Route: 048
  3. AMMONIUM CHLORIDE\DIPHENHYDRAMINE\ETOFYLLINE\SODIUM CITRATE\THEOPHYLLI [Concomitant]
     Active Substance: AMMONIUM CHLORIDE\DIPHENHYDRAMINE\ETOFYLLINE\SODIUM CITRATE\THEOPHYLLINE
     Indication: Product used for unknown indication
     Dosage: TAKE TWO MEDICINE MEASURES THREE TIMES A DAY
     Route: 048
  4. METFORMIN HYDROCHLORIDE [Concomitant]
     Active Substance: METFORMIN HYDROCHLORIDE
     Indication: Type 2 diabetes mellitus
     Dosage: 1000 MG TAKE ONE TABLET TWICE A DAY
     Route: 048
  5. THEOPHYLLINE ANHYDROUS [Concomitant]
     Active Substance: THEOPHYLLINE ANHYDROUS
     Indication: Bronchospasm
     Dosage: 250 MG TAKE ONE TABLET DAILY
     Route: 048
  6. SIMVASTATIN [Concomitant]
     Active Substance: SIMVASTATIN
     Indication: Blood cholesterol abnormal
     Dosage: 20 MG TAKE ONE TABLET DAILY
     Route: 048
  7. LISINOPRIL [Concomitant]
     Active Substance: LISINOPRIL
     Indication: Hypertension
     Dosage: 10 MG TAKE ONE TABLET DAILY
     Route: 048
  8. BETAPHLEM [Concomitant]
     Indication: Product used for unknown indication
     Route: 048
  9. ACETAMINOPHEN [Concomitant]
     Active Substance: ACETAMINOPHEN
     Indication: Product used for unknown indication
     Route: 048
  10. CEROXIM [Concomitant]
     Indication: Product used for unknown indication
     Dosage: 500 MG TAKE ONE TABLET TWICE A DAY
     Route: 048
  11. Oselflu [Concomitant]
     Indication: Product used for unknown indication
     Dosage: 75 MG TAKE ONE CAPSULE TWICE A DAY
     Route: 048
  12. MONTELUKAST SODIUM [Concomitant]
     Active Substance: MONTELUKAST SODIUM
     Indication: Asthma
     Dosage: 10 MG TAKE ONE TABLET DAILY
     Route: 048
  13. Adco linctopent [Concomitant]
     Indication: Product used for unknown indication
     Dosage: 10 ML THREE TIMES A DAY
     Route: 048
  14. ACETYLCYSTEINE [Concomitant]
     Active Substance: ACETYLCYSTEINE
     Indication: Product used for unknown indication
     Route: 048
  15. ACETYLCYSTEINE [Concomitant]
     Active Substance: ACETYLCYSTEINE
     Indication: Product used for unknown indication
     Route: 048

REACTIONS (2)
  - Renal disorder [Unknown]
  - Lung disorder [Unknown]
